FAERS Safety Report 4788783-2 (Version None)
Quarter: 2005Q4

REPORT INFORMATION
  Report Type: 
  Country: None (occurrence: None)
  Receive Date: 20051004
  Receipt Date: 20050912
  Transmission Date: 20060501
  Serious: Yes (Hospitalization)
  Sender: FDA-Public Use
  Company Number: 2005-132182-NL

PATIENT
  Age: 83 Year
  Sex: Male

DRUGS (7)
  1. DANAPAROID SODIUM [Suspect]
     Indication: HEPARIN-INDUCED THROMBOCYTOPENIA
     Dosage: 0.6 ML BID
     Dates: start: 20050807, end: 20050903
  2. CIPROFLOXACIN HYDROCHLORIDE [Concomitant]
  3. METOPROLOL [Concomitant]
  4. HYDROCHLOROTHIAZIDE [Concomitant]
  5. SUFENTANIL CITRATE [Concomitant]
  6. PHENPROCOUMON [Concomitant]
  7. DIMETINDENE MALEATE [Concomitant]

REACTIONS (1)
  - DERMATITIS BULLOUS [None]
